FAERS Safety Report 11923930 (Version 1)
Quarter: 2016Q1

REPORT INFORMATION
  Report Type: Spontaneous
  Country: US (occurrence: US)
  Receive Date: 20160118
  Receipt Date: 20160118
  Transmission Date: 20160526
  Serious: No
  Sender: FDA-Public Use
  Company Number: US-MYLANLABS-2015M1019227

PATIENT
  Age: 39 Year
  Sex: Female
  Weight: 122.45 kg

DRUGS (1)
  1. FENOFIBRATE TABLETS [Suspect]
     Active Substance: FENOFIBRATE
     Indication: BLOOD CHOLESTEROL INCREASED
     Dosage: 160 MG, QD
     Route: 048
     Dates: start: 20150603

REACTIONS (2)
  - Diarrhoea [Not Recovered/Not Resolved]
  - Reaction to drug excipients [Not Recovered/Not Resolved]

NARRATIVE: CASE EVENT DATE: 20150604
